FAERS Safety Report 5262405-9 (Version None)
Quarter: 2007Q1

REPORT INFORMATION
  Report Type: 
  Country: None (occurrence: None)
  Receive Date: 20070309
  Receipt Date: 20070309
  Transmission Date: 20070707
  Serious: Yes (Other)
  Sender: FDA-Public Use
  Company Number: None

PATIENT
  Sex: Female
  Weight: 66.6788 kg

DRUGS (2)
  1. SMZ/TMP DS 800-160 MUTUAL [Suspect]
     Indication: DIVERTICULITIS
     Dosage: 1 2/DAY PO
     Route: 048
     Dates: start: 20070304, end: 20070307
  2. METRONIDAZOL 250 MG PLIV [Suspect]
     Indication: DIVERTICULITIS
     Dosage: 1 3/DAY PO
     Route: 048
     Dates: start: 20070304, end: 20070307

REACTIONS (5)
  - HEADACHE [None]
  - NAUSEA [None]
  - PHARMACEUTICAL PRODUCT COMPLAINT [None]
  - RASH [None]
  - SKIN BURNING SENSATION [None]
